FAERS Safety Report 16946245 (Version 1)
Quarter: 2019Q4

REPORT INFORMATION
  Report Type: Spontaneous
  Country: US (occurrence: US)
  Receive Date: 20190829
  Receipt Date: 20190829
  Transmission Date: 20200122
  Serious: Yes (Life-Threatening)
  Sender: FDA-Public Use
  Company Number: None

PATIENT
  Age: 50 Year
  Sex: Female
  Weight: 108 kg

DRUGS (10)
  1. WELLBUTRIN [Concomitant]
     Active Substance: BUPROPION HYDROCHLORIDE
  2. ZYRTEK [Concomitant]
     Active Substance: CETIRIZINE HYDROCHLORIDE
  3. IBUPROFEN. [Concomitant]
     Active Substance: IBUPROFEN
  4. VIT D [Concomitant]
     Active Substance: VITAMIN D NOS
  5. FENTANYL. [Suspect]
     Active Substance: FENTANYL
     Dates: start: 20170610, end: 20170610
  6. PRILOSEC [Concomitant]
     Active Substance: OMEPRAZOLE MAGNESIUM
  7. CLONODINE [Concomitant]
     Active Substance: CLONIDINE
  8. PROVIGIL [Concomitant]
     Active Substance: MODAFINIL
  9. MAXZIDE [Concomitant]
     Active Substance: HYDROCHLOROTHIAZIDE\TRIAMTERENE
  10. KLONOPIN [Concomitant]
     Active Substance: CLONAZEPAM

REACTIONS (5)
  - Blood pressure increased [None]
  - Nephropathy [None]
  - Treatment failure [None]
  - Drug screen positive [None]
  - Drug withdrawal syndrome [None]

NARRATIVE: CASE EVENT DATE: 20170725
